FAERS Safety Report 26040985 (Version 1)
Quarter: 2025Q4

REPORT INFORMATION
  Report Type: Spontaneous
  Country: US (occurrence: None)
  Receive Date: 20251112
  Receipt Date: 20251112
  Transmission Date: 20260117
  Serious: Yes (Other)
  Sender: FDA-CTU
  Company Number: None

PATIENT
  Age: 42 Year
  Sex: Female
  Weight: 64.35 kg

DRUGS (1)
  1. VIVITROL [Suspect]
     Active Substance: NALTREXONE
     Indication: Alcohol use disorder
     Dosage: 380 MG EVERY 28 DAYS INTRAMUSCULAR
     Route: 030
     Dates: start: 20250723, end: 20251015

REACTIONS (3)
  - Neuropathy peripheral [None]
  - Paraesthesia [None]
  - Insomnia [None]

NARRATIVE: CASE EVENT DATE: 20251015
